FAERS Safety Report 25318573 (Version 2)
Quarter: 2025Q2

REPORT INFORMATION
  Report Type: Report from Study
  Country: CA (occurrence: CA)
  Receive Date: 20250515
  Receipt Date: 20250603
  Transmission Date: 20250716
  Serious: Yes (Other)
  Sender: ABBVIE
  Company Number: CA-ABBVIE-6133890

PATIENT
  Age: 58 Year
  Sex: Male

DRUGS (5)
  1. VYALEV [Suspect]
     Active Substance: FOSCARBIDOPA\FOSLEVODOPA
     Indication: Parkinson^s disease
     Route: 058
     Dates: start: 20250113, end: 20250324
  2. SINEMET [Concomitant]
     Active Substance: CARBIDOPA\LEVODOPA
     Indication: Product used for unknown indication
  3. CARBIDOPA\LEVODOPA [Concomitant]
     Active Substance: CARBIDOPA\LEVODOPA
     Indication: Product used for unknown indication
  4. STALEVO [Concomitant]
     Active Substance: CARBIDOPA\ENTACAPONE\LEVODOPA
     Indication: Product used for unknown indication
  5. CARBIDOPA AND LEVODOPA [Concomitant]
     Active Substance: CARBIDOPA\LEVODOPA
     Indication: Product used for unknown indication

REACTIONS (19)
  - Intestinal operation [Unknown]
  - Fall [Unknown]
  - Depression [Unknown]
  - Memory impairment [Unknown]
  - Unevaluable event [Unknown]
  - Incorrect dose administered [Unknown]
  - Speech disorder [Unknown]
  - Confusional state [Unknown]
  - Therapeutic product effect decreased [Unknown]
  - Disturbance in social behaviour [Unknown]
  - Medical device discomfort [Unknown]
  - Frustration tolerance decreased [Unknown]
  - Therapeutic product effect variable [Unknown]
  - Balance disorder [Unknown]
  - Device leakage [Unknown]
  - Malabsorption [Unknown]
  - On and off phenomenon [Unknown]
  - Injection site swelling [Unknown]
  - Scar [Unknown]

NARRATIVE: CASE EVENT DATE: 20250101
